FAERS Safety Report 18367150 (Version 1)
Quarter: 2020Q4

REPORT INFORMATION
  Report Type: Spontaneous
  Country: HU (occurrence: HU)
  Receive Date: 20201009
  Receipt Date: 20201009
  Transmission Date: 20210114
  Serious: Yes (Hospitalization, Other)
  Sender: FDA-Public Use
  Company Number: HU-JNJFOC-20201007674

PATIENT

DRUGS (4)
  1. ZAVESCA [Suspect]
     Active Substance: MIGLUSTAT
     Dosage: 1/2 CAPSULE TID
     Route: 048
  2. ZAVESCA [Suspect]
     Active Substance: MIGLUSTAT
     Indication: GALACTOSIALIDOSIS
     Dosage: 1/2 CAPSULE BID FOR 5 DAYS
     Route: 048
  3. AUGMENTIN [Concomitant]
     Active Substance: AMOXICILLIN\CLAVULANATE POTASSIUM
  4. ZAVESCA [Suspect]
     Active Substance: MIGLUSTAT
     Dosage: 1-1/2-1 CAPSULE ON THE 4TH WEEK OF TREATMENT
     Route: 048

REACTIONS (8)
  - Dystonia [Unknown]
  - Product use in unapproved indication [Unknown]
  - Respiration abnormal [Unknown]
  - Gait disturbance [Unknown]
  - Pyrexia [Unknown]
  - Neurological symptom [Unknown]
  - Epistaxis [Unknown]
  - Product use issue [Unknown]
